FAERS Safety Report 10430083 (Version 1)
Quarter: 2014Q3

REPORT INFORMATION
  Report Type: Spontaneous
  Country: US (occurrence: None)
  Receive Date: 20140902
  Receipt Date: 20140902
  Transmission Date: 20150326
  Serious: Yes (Hospitalization)
  Sender: FDA-Public Use
  Company Number: None

PATIENT
  Age: 10 Month
  Sex: Female
  Weight: 8.4 kg

DRUGS (4)
  1. CYTARABINE. [Suspect]
     Active Substance: CYTARABINE
     Dates: end: 20140819
  2. HYDROCORTISONE. [Suspect]
     Active Substance: HYDROCORTISONE
     Dates: end: 20140819
  3. METHOTREXATE [Suspect]
     Active Substance: METHOTREXATE
     Dates: end: 20140820
  4. LEUCOVORIN CALCIUM. [Suspect]
     Active Substance: LEUCOVORIN CALCIUM
     Dates: end: 20140823

REACTIONS (8)
  - Stomatitis [None]
  - Vomiting [None]
  - Weight decreased [None]
  - Anal ulcer [None]
  - Mucosal inflammation [None]
  - Adenovirus test positive [None]
  - Anuria [None]
  - Diarrhoea [None]

NARRATIVE: CASE EVENT DATE: 20140826
